FAERS Safety Report 9419175 (Version 3)
Quarter: 2014Q2

REPORT INFORMATION
  Report Type: Report from Study
  Country: JP (occurrence: JP)
  Receive Date: 20130725
  Receipt Date: 20140505
  Transmission Date: 20141212
  Serious: Yes (Life-Threatening, Hospitalization)
  Sender: FDA-Public Use
  Company Number: JP-AMGEN-JPNCT2013052065

PATIENT
  Age: 72 Year
  Sex: Male
  Weight: 68 kg

DRUGS (36)
  1. DARBEPOETIN ALFA [Suspect]
     Indication: NEPHROGENIC ANAEMIA
     Dosage: 60 MUG, UNK
     Route: 058
     Dates: start: 20110208
  2. KREMEZIN [Concomitant]
     Indication: DIABETIC NEPHROPATHY
     Dosage: UNK
     Route: 048
     Dates: start: 20090421, end: 20121119
  3. MONILAC [Concomitant]
     Dosage: UNK
     Route: 048
  4. FLUTIDE [Concomitant]
     Dosage: UNK
     Route: 055
  5. MUCODYNE [Concomitant]
     Dosage: UNK
     Route: 048
  6. AMARYL [Concomitant]
     Dosage: UNK
     Route: 048
  7. HARNAL D [Concomitant]
     Dosage: UNK
     Route: 048
  8. NITROPEN [Concomitant]
     Dosage: UNK
     Route: 060
  9. VASOLAN [Concomitant]
     Dosage: UNK
     Route: 048
  10. LASIX [Concomitant]
     Dosage: UNK
     Route: 048
  11. ONON [Concomitant]
     Dosage: UNK
     Route: 048
  12. ITOROL [Concomitant]
     Dosage: UNK
     Route: 048
  13. TAKEPRON [Concomitant]
     Dosage: UNK
     Route: 048
  14. URSO [Concomitant]
     Dosage: UNK
     Route: 048
  15. WARFARIN [Concomitant]
     Dosage: UNK
     Route: 048
  16. NASONEX [Concomitant]
     Dosage: UNK
     Route: 045
  17. ZYLORIC [Concomitant]
     Dosage: UNK
     Route: 048
  18. ZETIA [Concomitant]
     Dosage: UNK
     Route: 048
  19. LAXOBERON [Concomitant]
     Dosage: UNK
     Route: 048
  20. ASPENON [Concomitant]
     Dosage: UNK
     Route: 048
  21. PURSENNID [Concomitant]
     Dosage: UNK
     Route: 048
  22. BISOLVON [Concomitant]
     Dosage: UNK
     Route: 048
  23. MENESIT [Concomitant]
     Dosage: UNK
     Route: 048
  24. FERROMIA [Concomitant]
     Dosage: UNK
     Route: 048
  25. MUCOSTA [Concomitant]
     Dosage: UNK
     Route: 048
  26. TAURINE [Concomitant]
     Dosage: UNK
     Route: 048
  27. MUCOSOLVAN L [Concomitant]
     Dosage: UNK
     Route: 048
  28. ADALAT CR [Concomitant]
     Dosage: UNK
     Route: 048
  29. AVOLVE [Concomitant]
     Dosage: UNK
     Route: 048
  30. FEBURIC [Concomitant]
     Dosage: UNK
     Route: 048
  31. BAYASPIRIN [Concomitant]
     Dosage: UNK
     Route: 048
  32. AMLODIN [Concomitant]
     Dosage: UNK
     Route: 048
  33. SELARA [Concomitant]
     Dosage: UNK
     Route: 048
  34. BASEN [Concomitant]
     Dosage: UNK
     Route: 048
  35. ROHYPNOL [Concomitant]
     Dosage: UNK
     Route: 048
  36. EQUA [Concomitant]
     Dosage: UNK
     Route: 048

REACTIONS (4)
  - Jaundice cholestatic [Recovering/Resolving]
  - Jaundice cholestatic [Recovering/Resolving]
  - Small intestine carcinoma [Not Recovered/Not Resolved]
  - Intestinal obstruction [Recovered/Resolved]
